FAERS Safety Report 4339994-1 (Version None)
Quarter: 2004Q2

REPORT INFORMATION
  Report Type: 
  Country: None (occurrence: None)
  Receive Date: 20040412
  Receipt Date: 20040402
  Transmission Date: 20050107
  Serious: Yes (Hospitalization, Disabling)
  Sender: FDA-Public Use
  Company Number: STA-AE-03-MTX-164

PATIENT
  Age: 18 Year
  Sex: Male

DRUGS (3)
  1. METHOTREXATE [Suspect]
     Indication: SPONDYLOSIS
     Dosage: 20 MG 1X PER 1 WK/ORAL
     Route: 048
  2. ENBREL [Suspect]
     Indication: SPONDYLOSIS
     Dosage: 25 MG 2DX PER 1WK
  3. FOLIC ACID [Concomitant]

REACTIONS (5)
  - HYPOCALCAEMIA [None]
  - METASTASES TO BONE [None]
  - SWELLING [None]
  - THYROID GLAND CANCER [None]
  - VOCAL CORD PARESIS [None]
